FAERS Safety Report 17261997 (Version 1)
Quarter: 2020Q1

REPORT INFORMATION
  Report Type: Spontaneous
  Country: US (occurrence: US)
  Receive Date: 20200113
  Receipt Date: 20200113
  Transmission Date: 20200409
  Serious: Yes (Death, Hospitalization, Other)
  Sender: FDA-Public Use
  Company Number: US-GLAXOSMITHKLINE-US2020GSK001420

PATIENT
  Age: 39 Year
  Sex: Male

DRUGS (2)
  1. BUPROPION. [Suspect]
     Active Substance: BUPROPION
     Indication: PRODUCT USED FOR UNKNOWN INDICATION
     Dosage: APPROX. 46 TABLETS
     Route: 048
  2. FLUORINE [Suspect]
     Active Substance: FLUORINE
     Indication: PRODUCT USED FOR UNKNOWN INDICATION
     Dosage: UNK
     Route: 055

REACTIONS (8)
  - Overdose [Fatal]
  - Arrhythmia [Fatal]
  - Myoclonus [Unknown]
  - Seizure [Unknown]
  - Brain injury [Unknown]
  - Suspected suicide [Fatal]
  - Cardio-respiratory arrest [Fatal]
  - Tremor [Unknown]
